FAERS Safety Report 6730121-X (Version None)
Quarter: 2010Q2

REPORT INFORMATION
  Report Type: 
  Country: None (occurrence: None)
  Receive Date: 20100513
  Receipt Date: 20100427
  Transmission Date: 20101027
  Serious: Yes (Other)
  Sender: FDA-Public Use
  Company Number: 2010S1002639

PATIENT
  Sex: Male

DRUGS (5)
  1. PHOSPHOSODA FLAVOR NOT SPECIFIED [Suspect]
     Indication: COLONOSCOPY
     Dosage: PO
     Route: 048
  2. LEVOTHYROXINE SODIUM [Concomitant]
  3. NIFEDIPINE [Concomitant]
  4. SIMVASTATIN [Concomitant]
  5. TRIAMCINOLON /00031901/ [Concomitant]

REACTIONS (2)
  - BLOOD CREATININE INCREASED [None]
  - RENAL DISORDER [None]
